FAERS Safety Report 23430149 (Version 6)
Quarter: 2024Q3

REPORT INFORMATION
  Report Type: Report from Study
  Country: US (occurrence: US)
  Receive Date: 20240123
  Receipt Date: 20240920
  Transmission Date: 20241017
  Serious: Yes (Hospitalization, Other)
  Sender: ABBVIE
  Company Number: US-ABBVIE-5597363

PATIENT
  Sex: Female

DRUGS (10)
  1. SKYRIZI [Suspect]
     Active Substance: RISANKIZUMAB-RZAA
     Indication: Psoriasis
     Dosage: LAST ADMIN DATE: 2022
     Route: 058
     Dates: start: 20220830
  2. SKYRIZI [Suspect]
     Active Substance: RISANKIZUMAB-RZAA
     Route: 058
     Dates: start: 20221031
  3. SKYRIZI [Suspect]
     Active Substance: RISANKIZUMAB-RZAA
     Route: 058
     Dates: start: 20230217
  4. SKYRIZI [Suspect]
     Active Substance: RISANKIZUMAB-RZAA
     Route: 058
  5. LISINOPRIL [Concomitant]
     Active Substance: LISINOPRIL
     Indication: Essential tremor
  6. ALBUTEROL [Concomitant]
     Active Substance: ALBUTEROL
     Indication: Emphysema
  7. METFORMIN [Concomitant]
     Active Substance: METFORMIN HYDROCHLORIDE
     Indication: Type 2 diabetes mellitus
     Dosage: METFORMIN 500MG ER
  8. SPIRIVA [Concomitant]
     Active Substance: TIOTROPIUM BROMIDE MONOHYDRATE
     Indication: Chronic obstructive pulmonary disease
     Dosage: ONE A DAY
  9. Elipta [Concomitant]
     Indication: Chronic obstructive pulmonary disease
     Dosage: TRILOGY ELIPTA
  10. SIMVASTATIN [Concomitant]
     Active Substance: SIMVASTATIN
     Indication: Blood cholesterol increased

REACTIONS (19)
  - Cholelithiasis [Recovering/Resolving]
  - Cataract [Recovered/Resolved]
  - Blood glucose increased [Unknown]
  - Gallbladder enlargement [Recovered/Resolved]
  - Weight decreased [Unknown]
  - Chronic obstructive pulmonary disease [Recovered/Resolved]
  - Pain [Unknown]
  - Large intestine polyp [Recovered/Resolved]
  - Pancreatitis [Recovering/Resolving]
  - Basal cell carcinoma [Recovered/Resolved]
  - Adverse food reaction [Unknown]
  - Alopecia [Unknown]
  - Rhinorrhoea [Unknown]
  - Cough [Not Recovered/Not Resolved]
  - Diarrhoea [Not Recovered/Not Resolved]
  - Pneumonia [Recovering/Resolving]
  - Skin discolouration [Unknown]
  - Dry skin [Unknown]
  - Lacrimation increased [Not Recovered/Not Resolved]

NARRATIVE: CASE EVENT DATE: 20230101
